FAERS Safety Report 7931573-X (Version None)
Quarter: 2011Q4

REPORT INFORMATION
  Report Type: 
  Country: None (occurrence: None)
  Receive Date: 20111121
  Receipt Date: 20111121
  Transmission Date: 20120403
  Serious: Yes (Other)
  Sender: FDA-Public Use
  Company Number: None

PATIENT
  Sex: Female
  Weight: 49.895 kg

DRUGS (1)
  1. MEFENAMIC ACID [Suspect]
     Indication: DYSMENORRHOEA
     Dosage: 2 CAPS AT ONSET, THEN 1 CAPS
     Route: 048
     Dates: start: 20111119, end: 20111119

REACTIONS (3)
  - ASTHENIA [None]
  - FATIGUE [None]
  - SOMNOLENCE [None]
